FAERS Safety Report 10402511 (Version 1)
Quarter: 2014Q3

REPORT INFORMATION
  Report Type: Spontaneous
  Country: US (occurrence: US)
  Receive Date: 20140822
  Receipt Date: 20140822
  Transmission Date: 20150326
  Serious: No
  Sender: FDA-Public Use
  Company Number: US-PFIZER INC-2014231371

PATIENT
  Age: 24 Year
  Sex: Male
  Weight: 91 kg

DRUGS (1)
  1. CYTOMEL [Suspect]
     Active Substance: LIOTHYRONINE SODIUM
     Indication: THYROID DISORDER
     Dosage: 5 UG, UNK
     Route: 048

REACTIONS (4)
  - Decreased appetite [Unknown]
  - Asthenia [Unknown]
  - Disturbance in attention [Unknown]
  - Fatigue [Unknown]
